FAERS Safety Report 5542912-1 (Version None)
Quarter: 2007Q4

REPORT INFORMATION
  Report Type: 
  Country: None (occurrence: None)
  Receive Date: 20071210
  Receipt Date: 20071128
  Transmission Date: 20080405
  Serious: Yes (Hospitalization)
  Sender: FDA-Public Use
  Company Number: FR-PFIZER INC-2007100634

PATIENT
  Sex: Male

DRUGS (1)
  1. XANAX [Suspect]
     Indication: DEPRESSION
     Route: 048
     Dates: start: 20070513, end: 20070514

REACTIONS (2)
  - AGGRESSION [None]
  - ANXIETY [None]
